FAERS Safety Report 6046496-3 (Version None)
Quarter: 2009Q1

REPORT INFORMATION
  Report Type: 
  Country: None (occurrence: None)
  Receive Date: 20090122
  Receipt Date: 20081222
  Transmission Date: 20090719
  Serious: No
  Sender: FDA-Public Use
  Company Number: US-BAYER-200841524NA

PATIENT
  Age: 30 Year
  Sex: Female
  Weight: 75 kg

DRUGS (1)
  1. MIRENA [Suspect]
     Indication: CONTRACEPTION
     Route: 015
     Dates: start: 20070430

REACTIONS (8)
  - ABDOMINAL PAIN [None]
  - AMENORRHOEA [None]
  - DYSMENORRHOEA [None]
  - HEADACHE [None]
  - INCREASED APPETITE [None]
  - IUCD COMPLICATION [None]
  - MENSTRUATION IRREGULAR [None]
  - NAUSEA [None]
